FAERS Safety Report 14667342 (Version 1)
Quarter: 2018Q1

REPORT INFORMATION
  Report Type: Spontaneous
  Country: FR (occurrence: FR)
  Receive Date: 20180322
  Receipt Date: 20180322
  Transmission Date: 20180509
  Serious: Yes (Life-Threatening, Hospitalization)
  Sender: FDA-Public Use
  Company Number: FR-CIPLA LTD.-2018FR12158

PATIENT

DRUGS (3)
  1. ASPIRINE PROTECT [Concomitant]
     Active Substance: ASPIRIN
     Indication: PRODUCT USED FOR UNKNOWN INDICATION
     Dosage: UNK
     Route: 048
  2. TENOFOVIR [Suspect]
     Active Substance: TENOFOVIR
     Indication: CHRONIC HEPATITIS B
     Dosage: 245 MG, UNK
     Route: 048
     Dates: end: 201710
  3. TENOFOVIR [Suspect]
     Active Substance: TENOFOVIR
     Dosage: 245 MG, UNK
     Route: 048
     Dates: start: 201710, end: 20180205

REACTIONS (3)
  - Fanconi syndrome [Recovering/Resolving]
  - Pancreatitis [Recovering/Resolving]
  - Shock [Recovered/Resolved]

NARRATIVE: CASE EVENT DATE: 20180205
